FAERS Safety Report 20003790 (Version 1)
Quarter: 2021Q4

REPORT INFORMATION
  Report Type: Spontaneous
  Country: CA (occurrence: CA)
  Receive Date: 20211027
  Receipt Date: 20211027
  Transmission Date: 20220303
  Serious: Yes (Hospitalization)
  Sender: FDA-Public Use
  Company Number: CA-PFIZER INC-2019277745

PATIENT
  Age: 77 Year
  Sex: Male

DRUGS (7)
  1. BOSULIF [Suspect]
     Active Substance: BOSUTINIB MONOHYDRATE
     Dosage: 300 MG, CYCLIC (DAILY FOR 28 DAYS)
     Route: 048
     Dates: start: 20190529
  2. BOSULIF [Suspect]
     Active Substance: BOSUTINIB MONOHYDRATE
     Dosage: 100 MG, CYCLIC (DAILY FOR 28 DAYS)
     Route: 048
     Dates: start: 20190807
  3. BOSULIF [Suspect]
     Active Substance: BOSUTINIB MONOHYDRATE
     Dosage: 300 MG, CYCLIC (DAILY FOR 28 DAYS)
     Route: 048
  4. BOSULIF [Suspect]
     Active Substance: BOSUTINIB MONOHYDRATE
     Dosage: 200 MG, CYCLIC (DAILY FOR 28 DAYS)
     Route: 048
  5. BOSULIF [Suspect]
     Active Substance: BOSUTINIB MONOHYDRATE
     Dosage: 200 MG, CYCLIC (DAILY FOR 10 DAYS)
     Route: 048
  6. BOSULIF [Suspect]
     Active Substance: BOSUTINIB MONOHYDRATE
     Dosage: 200 MG, CYCLIC (DAILY FOR 90 DAYS)
     Route: 048
     Dates: start: 20210602
  7. LOPERAMIDE HYDROCHLORIDE [Concomitant]
     Active Substance: LOPERAMIDE HYDROCHLORIDE
     Indication: Diarrhoea
     Dosage: 4 MG TO START, THEN 2MG WITH EVERY LOSE BOWEL MOVEMENT UP TO A MAXIMUM OF 16MG PER DAY
     Route: 048
     Dates: start: 20210602

REACTIONS (3)
  - Second primary malignancy [Unknown]
  - Lung carcinoma cell type unspecified stage IV [Unknown]
  - Alanine aminotransferase increased [Recovering/Resolving]
